FAERS Safety Report 7272785-0 (Version None)
Quarter: 2011Q1

REPORT INFORMATION
  Report Type: 
  Country: None (occurrence: None)
  Receive Date: 20110203
  Receipt Date: 20110125
  Transmission Date: 20110831
  Serious: Yes (Hospitalization)
  Sender: FDA-Public Use
  Company Number: JP-AMGEN-JPNCT2010001474

PATIENT
  Age: 70 Year
  Sex: Male
  Weight: 60 kg

DRUGS (7)
  1. PYRINAZIN [Concomitant]
     Dosage: UNK
     Route: 048
  2. FAMOTIDINE D SAWAI [Concomitant]
     Dosage: UNK
     Route: 048
  3. PANITUMUMAB [Suspect]
     Indication: COLORECTAL CANCER
     Dosage: 6 MG/KG, Q2WK
     Route: 042
     Dates: start: 20100816, end: 20100913
  4. OXYCONTIN [Concomitant]
     Dosage: UNK
     Route: 048
  5. OXINORM [Concomitant]
     Dosage: UNK
     Route: 048
  6. LOXOPROFEN [Concomitant]
     Dosage: UNK
     Route: 048
  7. PURSENNID [Concomitant]
     Dosage: UNK
     Route: 048

REACTIONS (1)
  - CONVULSION [None]
